FAERS Safety Report 16279745 (Version 3)
Quarter: 2019Q2

REPORT INFORMATION
  Report Type: Spontaneous
  Country: US (occurrence: US)
  Receive Date: 20190507
  Receipt Date: 20190612
  Transmission Date: 20190711
  Serious: Yes (Hospitalization)
  Sender: FDA-Public Use
  Company Number: US-SHIRE-US201914614

PATIENT
  Sex: Male

DRUGS (1)
  1. ELAPRASE [Suspect]
     Active Substance: IDURSULFASE
     Indication: MUCOPOLYSACCHARIDOSIS II
     Dosage: 6 DOSAGE FORM, 1X/WEEK
     Route: 042
     Dates: start: 20060914

REACTIONS (3)
  - Seroma [Recovered/Resolved]
  - Scoliosis [Not Recovered/Not Resolved]
  - Spinal stenosis [Unknown]
